FAERS Safety Report 16264266 (Version 1)
Quarter: 2019Q2

REPORT INFORMATION
  Report Type: Spontaneous
  Country: FR (occurrence: FR)
  Receive Date: 20190502
  Receipt Date: 20190502
  Transmission Date: 20190711
  Serious: Yes (Hospitalization)
  Sender: FDA-Public Use
  Company Number: FR-EMD SERONO-9088030

PATIENT
  Sex: Female

DRUGS (5)
  1. PERGOVERIS [Suspect]
     Active Substance: FOLLITROPIN\LUTROPIN ALFA
     Indication: CONTROLLED OVARIAN STIMULATION
  2. OVITRELLE [Suspect]
     Active Substance: CHORIOGONADOTROPIN ALFA
     Indication: OVULATION INDUCTION
  3. GANIRELIX ACETATE. [Suspect]
     Active Substance: GANIRELIX ACETATE
     Indication: PREVENTION OF PREMATURE OVULATION
  4. PERGOVERIS [Suspect]
     Active Substance: FOLLITROPIN\LUTROPIN ALFA
  5. MINIDRIL [Suspect]
     Active Substance: ETHINYL ESTRADIOL\LEVONORGESTREL
     Indication: IN VITRO FERTILISATION

REACTIONS (1)
  - Peritoneal haemorrhage [Unknown]
